FAERS Safety Report 7392105-0 (Version None)
Quarter: 2011Q2

REPORT INFORMATION
  Report Type: 
  Country: None (occurrence: None)
  Receive Date: 20110404
  Receipt Date: 20110325
  Transmission Date: 20111010
  Serious: Yes (Hospitalization)
  Sender: FDA-Public Use
  Company Number: A0806821A

PATIENT
  Sex: Female
  Weight: 67 kg

DRUGS (2)
  1. TRASTUZUMAB [Suspect]
     Indication: BREAST CANCER
     Dosage: 4MGK WEEKLY
     Route: 042
     Dates: start: 20081114
  2. LAPATINIB [Suspect]
     Indication: BREAST CANCER
     Dosage: 1500MG PER DAY
     Route: 048
     Dates: start: 20090313

REACTIONS (2)
  - NAIL DISORDER [None]
  - PARONYCHIA [None]
